FAERS Safety Report 5662963-6 (Version None)
Quarter: 2008Q1

REPORT INFORMATION
  Report Type: 
  Country: None (occurrence: None)
  Receive Date: 20080313
  Receipt Date: 20080306
  Transmission Date: 20080703
  Serious: Yes (Life-Threatening)
  Sender: FDA-Public Use
  Company Number: JP-ASTRAZENECA-2008SE01357

PATIENT
  Age: 0 Year

DRUGS (1)
  1. BLOPRESS [Suspect]
     Route: 048
     Dates: end: 20080305

REACTIONS (2)
  - ACCIDENTAL DRUG INTAKE BY CHILD [None]
  - HYPONATRAEMIA [None]
